FAERS Safety Report 14352224 (Version 1)
Quarter: 2018Q1

REPORT INFORMATION
  Report Type: Spontaneous
  Country: US (occurrence: US)
  Receive Date: 20180104
  Receipt Date: 20180104
  Transmission Date: 20180509
  Serious: No
  Sender: FDA-Public Use
  Company Number: US-STRONGBRIDGE BIOPHARMA-2017-STR-000212

PATIENT
  Age: 51 Year
  Sex: Female

DRUGS (2)
  1. VITAMIN D3 [Concomitant]
     Active Substance: CHOLECALCIFEROL
     Indication: PRODUCT USED FOR UNKNOWN INDICATION
     Dosage: UNK
  2. KEVEYIS [Suspect]
     Active Substance: DICHLORPHENAMIDE
     Indication: PRODUCT USED FOR UNKNOWN INDICATION
     Dosage: UNK
     Route: 048
     Dates: start: 20170428

REACTIONS (8)
  - Disease recurrence [Unknown]
  - Pain [Unknown]
  - Hypertension [Unknown]
  - Joint swelling [Unknown]
  - Fatigue [Unknown]
  - Muscular weakness [Unknown]
  - Vaginal discharge [Unknown]
  - Sleep disorder [Unknown]

NARRATIVE: CASE EVENT DATE: 20171220
